FAERS Safety Report 7535516-2 (Version None)
Quarter: 2011Q2

REPORT INFORMATION
  Report Type: 
  Country: None (occurrence: None)
  Receive Date: 20110609
  Receipt Date: 20110607
  Transmission Date: 20111010
  Serious: Yes (Life-Threatening, Hospitalization)
  Sender: FDA-Public Use
  Company Number: DK-JNJFOC-20110602427

PATIENT
  Sex: Male
  Weight: 80 kg

DRUGS (1)
  1. CONCERTA [Suspect]
     Indication: ATTENTION DEFICIT/HYPERACTIVITY DISORDER
     Dosage: 54 MG + 36 MG
     Route: 048
     Dates: start: 20100101, end: 20110506

REACTIONS (1)
  - ACUTE MYOCARDIAL INFARCTION [None]
